FAERS Safety Report 7223899 (Version 5)
Quarter: 2012Q4

REPORT INFORMATION
  Report Type: 
  Country: JP (occurrence: JP)
  Receive Date: 20091221
  Receipt Date: 20121009
  Transmission Date: 20130627
  Serious: Yes (Hospitalization, Other)
  Sender: FDA-Public Use
  Company Number: JP-BAYER-200914059BYL

PATIENT
  Age: 62 Year
  Sex: Male
  Weight: 64.2 kg

DRUGS (11)
  1. NEXAVAR [Suspect]
     Indication: HEPATIC NEOPLASM MALIGNANT
     Route: 048
     Dates: start: 20090904, end: 20091018
  2. NEXAVAR [Suspect]
     Indication: HEPATIC NEOPLASM MALIGNANT
     Route: 048
     Dates: start: 20091019
  3. NEXAVAR [Suspect]
     Indication: HEPATIC NEOPLASM MALIGNANT
     Route: 048
     Dates: start: 200911, end: 20091211
  4. ZEFIX [Suspect]
     Indication: HEPATITIS B VIRUS TEST POSITIVE
     Dosage: 1 DF (Daily Dose), , oral
     Route: 048
     Dates: start: 200608
  5. FOIPAN [Concomitant]
     Dosage: SINCE BEFORE 2005
     Route: 048
  6. CISPLATIN [Concomitant]
     Dosage: 65 mg (Daily Dose), , intra-arterial
     Route: 013
     Dates: start: 20090805, end: 20090805
  7. NORVASC [Concomitant]
     Dosage: 10 mg (Daily Dose), , oral
     Route: 048
     Dates: start: 20090928
  8. JUZENTAIHOTO [Concomitant]
     Dosage: 7.5 g (Daily Dose), , oral
     Route: 048
  9. URSO [Concomitant]
     Dosage: 600 mg (Daily Dose), , oral
     Route: 048
  10. TAKEPRON [Concomitant]
     Dosage: 60 mg (Daily Dose), , oral
     Route: 048
  11. KERATINAMIN [Concomitant]
     Route: 061

REACTIONS (6)
  - Gastric haemorrhage [Recovering/Resolving]
  - Anaemia [Unknown]
  - Malaise [Unknown]
  - Palmar-plantar erythrodysaesthesia syndrome [Unknown]
  - Decreased appetite [Recovered/Resolved]
  - Haematochezia [None]
